FAERS Safety Report 9387428 (Version 2)
Quarter: 2013Q4

REPORT INFORMATION
  Report Type: Report from Study
  Country: US (occurrence: US)
  Receive Date: 20130708
  Receipt Date: 20131231
  Transmission Date: 20140711
  Serious: Yes (Hospitalization)
  Sender: FDA-Public Use
  Company Number: US-ALEXION PHARMACEUTICALS INC.-A201301529

PATIENT
  Sex: Female
  Weight: 76 kg

DRUGS (13)
  1. SOLIRIS [Suspect]
     Indication: PAROXYSMAL NOCTURNAL HAEMOGLOBINURIA
     Dosage: 900 MG, UNK
     Route: 042
  2. DILAUDID [Concomitant]
     Dosage: 2MG-4MG Q4H,PRN
     Route: 048
  3. LOVENOX [Concomitant]
     Dosage: 80 MG, BID
  4. SYMBICORT TURBUHALER [Concomitant]
  5. ALBUTEROL HFA [Concomitant]
     Dosage: UNK,PRN
  6. ASPIRIN COMPOUND [Concomitant]
  7. BENADRYL PLUS [Concomitant]
  8. FOLIC ACID [Concomitant]
  9. MULTIVITAMIN [Concomitant]
  10. PHENERGAN [Concomitant]
  11. RESTORIL [Concomitant]
  12. SPIRIVA HANDIHALER [Concomitant]
  13. OXYCODONE HCL ER [Concomitant]
     Dosage: 30 MG, PRN
     Route: 048

REACTIONS (1)
  - Pneumonia [Recovered/Resolved]
